FAERS Safety Report 21595879 (Version 2)
Quarter: 2022Q4

REPORT INFORMATION
  Report Type: Spontaneous
  Country: US (occurrence: US)
  Receive Date: 20221115
  Receipt Date: 20221125
  Transmission Date: 20230112
  Serious: Yes (Hospitalization, Other)
  Sender: FDA-Public Use
  Company Number: US-ASTELLAS-2022US040192

PATIENT
  Age: 86 Year
  Sex: Male

DRUGS (19)
  1. ENFORTUMAB VEDOTIN [Suspect]
     Active Substance: ENFORTUMAB VEDOTIN
     Indication: Transitional cell carcinoma
     Dosage: 86 MG, CYCLIC (TOTAL OF 4 MONTHLY CYCLE: 3 WEEKLY DOSES IN EACH CYCLE)
     Route: 042
     Dates: start: 20210524
  2. ENFORTUMAB VEDOTIN [Suspect]
     Active Substance: ENFORTUMAB VEDOTIN
     Dosage: 86 MG, CYCLIC  (TOTAL OF 4 MONTHLY CYCLE: 3 WEEKLY DOSES IN EACH CYCLE)
     Route: 042
     Dates: start: 20210601
  3. ENFORTUMAB VEDOTIN [Suspect]
     Active Substance: ENFORTUMAB VEDOTIN
     Dosage: 86 MG, CYCLIC  (TOTAL OF 4 MONTHLY CYCLE: 3 WEEKLY DOSES IN EACH CYCLE)
     Route: 042
     Dates: start: 20210614
  4. ENFORTUMAB VEDOTIN [Suspect]
     Active Substance: ENFORTUMAB VEDOTIN
     Dosage: 86 MG, CYCLIC  (TOTAL OF 4 MONTHLY CYCLE: 3 WEEKLY DOSES IN EACH CYCLE)
     Route: 042
     Dates: start: 20210621
  5. ENFORTUMAB VEDOTIN [Suspect]
     Active Substance: ENFORTUMAB VEDOTIN
     Dosage: 80 MG (1.25 MG/KG), CYCLIC (TOTAL OF 4 MONTHLY CYCLE: 3 WEEKLY DOSES IN EACH CYCLE)
     Route: 042
     Dates: start: 20210712
  6. ENFORTUMAB VEDOTIN [Suspect]
     Active Substance: ENFORTUMAB VEDOTIN
     Dosage: 80 MG (1.25 MG/KG), CYCLIC (TOTAL OF 4 MONTHLY CYCLE: 3 WEEKLY DOSES IN EACH CYCLE)
     Route: 042
     Dates: start: 20210719
  7. ENFORTUMAB VEDOTIN [Suspect]
     Active Substance: ENFORTUMAB VEDOTIN
     Dosage: 80 MG (1.25 MG/KG), CYCLIC (TOTAL OF 4 MONTHLY CYCLE: 3 WEEKLY DOSES IN EACH CYCLE)
     Route: 042
     Dates: start: 20210726
  8. ENFORTUMAB VEDOTIN [Suspect]
     Active Substance: ENFORTUMAB VEDOTIN
     Dosage: 80 MG (1.25 MG/KG), CYCLIC (TOTAL OF 4 MONTHLY CYCLE: 3 WEEKLY DOSES IN EACH CYCLE)
     Route: 042
     Dates: start: 20210809
  9. ALOGLIPTIN [Concomitant]
     Active Substance: ALOGLIPTIN
     Indication: Product used for unknown indication
     Dosage: 12.5 MG, ONCE DAILY (TAKE ONE-HALF TABLET BY MOUTH)
     Route: 048
  10. AMLODIPINE BESYLATE [Concomitant]
     Active Substance: AMLODIPINE BESYLATE
     Indication: Blood pressure management
     Route: 048
  11. CARBOXYMETHYLCELLULOSE [Concomitant]
     Active Substance: CARBOXYMETHYLCELLULOSE
     Indication: Eye lubrication therapy
     Dosage: UNK UNK, 4 TIMES DAILY
     Route: 047
  12. CYANOCOBALAMIN [Concomitant]
     Active Substance: CYANOCOBALAMIN
     Indication: Vitamin supplementation
     Route: 048
  13. GLIMEPIRIDE [Concomitant]
     Active Substance: GLIMEPIRIDE
     Indication: Diabetes mellitus
     Dosage: 1MG TAB TAKE ONE-HALF TABLET, ONCE DAILY
     Route: 048
  14. METOPROLOL TARTRATE [Concomitant]
     Active Substance: METOPROLOL TARTRATE
     Indication: Blood pressure management
     Route: 048
  15. OMEPRAZOLE [Concomitant]
     Active Substance: OMEPRAZOLE
     Indication: Gastric pH increased
     Route: 048
  16. SIMVASTATIN [Concomitant]
     Active Substance: SIMVASTATIN
     Indication: Blood cholesterol abnormal
     Dosage: TAKE ONE-HALF TABLET EVERY EVENING, ONCE DAILY
     Route: 048
  17. PROCHLORPERAZINE MALEATE [Concomitant]
     Active Substance: PROCHLORPERAZINE MALEATE
     Indication: Nausea
     Route: 048
  18. PROCHLORPERAZINE MALEATE [Concomitant]
     Active Substance: PROCHLORPERAZINE MALEATE
     Indication: Vomiting
  19. CHOLECALCIFEROL [Concomitant]
     Active Substance: CHOLECALCIFEROL
     Indication: Product used for unknown indication
     Dosage: 25 ?G, ONCE DAILY (EVERY MORNING)
     Route: 048

REACTIONS (1)
  - Tubulointerstitial nephritis [Recovering/Resolving]

NARRATIVE: CASE EVENT DATE: 20210101
